FAERS Safety Report 7289235-0 (Version None)
Quarter: 2011Q1

REPORT INFORMATION
  Report Type: 
  Country: None (occurrence: None)
  Receive Date: 20110201
  Receipt Date: 20110118
  Transmission Date: 20110831
  Serious: Yes (Hospitalization, Other)
  Sender: FDA-Public Use
  Company Number: 2010P1002577

PATIENT
  Age: 71 Year
  Sex: Female
  Weight: 86.1834 kg

DRUGS (9)
  1. UNSPECIFIED PAIN MEDICATIONS [Concomitant]
  2. UNSPECIFIED GOUT MEDICATIONS [Concomitant]
  3. FENTANYL-25 [Suspect]
     Indication: ARTHRITIS
     Dosage: 125 MCG/HR;Q3D;TDER ; 25 MCG/HR;Q3D;TDER ; 50 MCG/HR;Q3D;TDER
     Route: 062
     Dates: start: 20100101, end: 20100827
  4. FENTANYL-25 [Suspect]
     Indication: PAIN
     Dosage: 125 MCG/HR;Q3D;TDER ; 25 MCG/HR;Q3D;TDER ; 50 MCG/HR;Q3D;TDER
     Route: 062
     Dates: start: 20100101, end: 20100827
  5. FENTANYL-25 [Suspect]
     Indication: ARTHRITIS
     Dosage: 125 MCG/HR;Q3D;TDER ; 25 MCG/HR;Q3D;TDER ; 50 MCG/HR;Q3D;TDER
     Route: 062
     Dates: start: 20100827
  6. FENTANYL-25 [Suspect]
     Indication: PAIN
     Dosage: 125 MCG/HR;Q3D;TDER ; 25 MCG/HR;Q3D;TDER ; 50 MCG/HR;Q3D;TDER
     Route: 062
     Dates: start: 20100827
  7. FENTANYL-25 [Suspect]
     Indication: ARTHRITIS
     Dosage: 125 MCG/HR;Q3D;TDER ; 25 MCG/HR;Q3D;TDER ; 50 MCG/HR;Q3D;TDER
     Route: 062
     Dates: start: 20100101, end: 20100101
  8. FENTANYL-25 [Suspect]
     Indication: PAIN
     Dosage: 125 MCG/HR;Q3D;TDER ; 25 MCG/HR;Q3D;TDER ; 50 MCG/HR;Q3D;TDER
     Route: 062
     Dates: start: 20100101, end: 20100101
  9. UNSPECIFIED HIGH BLOOD PRESSURE MEDICATIONS [Concomitant]

REACTIONS (2)
  - PNEUMONIA [None]
  - DRUG WITHDRAWAL SYNDROME [None]
